FAERS Safety Report 14081324 (Version 13)
Quarter: 2019Q2

REPORT INFORMATION
  Report Type: Spontaneous
  Country: US (occurrence: US)
  Receive Date: 20171012
  Receipt Date: 20190617
  Transmission Date: 20190711
  Serious: Yes (Hospitalization)
  Sender: FDA-Public Use
  Company Number: US-ACTELION-A-NJ2017-160724

PATIENT
  Age: 64 Year
  Sex: Female

DRUGS (5)
  1. FENTANYL. [Concomitant]
     Active Substance: FENTANYL
  2. OPSUMIT [Suspect]
     Active Substance: MACITENTAN
     Indication: PULMONARY ARTERIAL HYPERTENSION
     Dosage: 10 MG, QD
     Route: 048
     Dates: start: 201703
  3. LORAZEPAM. [Concomitant]
     Active Substance: LORAZEPAM
  4. OXYCODONE [Concomitant]
     Active Substance: OXYCODONE
  5. ADCIRCA [Suspect]
     Active Substance: TADALAFIL
     Indication: PULMONARY ARTERIAL HYPERTENSION
     Dosage: 20 MG, QD
     Route: 065

REACTIONS (17)
  - Oedema [Not Recovered/Not Resolved]
  - Heart rate increased [Not Recovered/Not Resolved]
  - Memory impairment [Unknown]
  - Product dose omission [Unknown]
  - Multiple allergies [Unknown]
  - Ocular discomfort [Not Recovered/Not Resolved]
  - Fatigue [Unknown]
  - Eye swelling [Not Recovered/Not Resolved]
  - Gastrointestinal haemorrhage [Unknown]
  - Atrial fibrillation [Unknown]
  - Tinnitus [Not Recovered/Not Resolved]
  - Heart rate irregular [Unknown]
  - Cataract [Unknown]
  - Back disorder [Not Recovered/Not Resolved]
  - Vasodilatation [Unknown]
  - Oedema peripheral [Not Recovered/Not Resolved]
  - Exophthalmos [Not Recovered/Not Resolved]

NARRATIVE: CASE EVENT DATE: 201703
